FAERS Safety Report 13537806 (Version 2)
Quarter: 2017Q3

REPORT INFORMATION
  Report Type: Spontaneous
  Country: US (occurrence: US)
  Receive Date: 20170511
  Receipt Date: 20170704
  Transmission Date: 20171127
  Serious: No
  Sender: FDA-Public Use
  Company Number: US-TEVA-766249ACC

PATIENT
  Age: 62 Year
  Sex: Female

DRUGS (13)
  1. BIOTIN [Concomitant]
     Active Substance: BIOTIN
  2. GABAPENTIN. [Concomitant]
     Active Substance: GABAPENTIN
  3. METFORMIN [Concomitant]
     Active Substance: METFORMIN HYDROCHLORIDE
  4. COPAXONE [Suspect]
     Active Substance: GLATIRAMER ACETATE
     Route: 058
     Dates: start: 20160323
  5. EXCEDRIN [Concomitant]
     Active Substance: ACETAMINOPHEN\ASPIRIN\CAFFEINE
  6. ANASTROZOLE. [Concomitant]
     Active Substance: ANASTROZOLE
  7. BACLOFEN. [Concomitant]
     Active Substance: BACLOFEN
  8. SPIRONOLACTONE. [Concomitant]
     Active Substance: SPIRONOLACTONE
  9. CINNAMON. [Concomitant]
     Active Substance: CINNAMON
  10. MULTIVITAMINS [Concomitant]
     Active Substance: VITAMINS
  11. DDAVP [Concomitant]
     Active Substance: DESMOPRESSIN ACETATE
  12. VITAMIN D [Concomitant]
     Active Substance: CHOLECALCIFEROL
  13. XANAX [Concomitant]
     Active Substance: ALPRAZOLAM

REACTIONS (1)
  - Neuropathy peripheral [Not Recovered/Not Resolved]

NARRATIVE: CASE EVENT DATE: 201703
